FAERS Safety Report 23385141 (Version 3)
Quarter: 2024Q1

REPORT INFORMATION
  Report Type: Report from Study
  Country: CO (occurrence: CO)
  Receive Date: 20240110
  Receipt Date: 20240125
  Transmission Date: 20240409
  Serious: Yes (Death, Hospitalization)
  Sender: FDA-Public Use
  Company Number: CO-BIOGEN-2024BI01243771

PATIENT
  Age: 0 Year
  Sex: Female
  Weight: 7.4 kg

DRUGS (1)
  1. SPINRAZA [Suspect]
     Active Substance: NUSINERSEN
     Indication: Spinal muscular atrophy
     Route: 050
     Dates: start: 20231219, end: 20240102

REACTIONS (5)
  - Cardio-respiratory arrest [Fatal]
  - Atelectasis [Fatal]
  - Pneumonia viral [Fatal]
  - Respiratory distress [Fatal]
  - Cardio-respiratory arrest [Recovered/Resolved]

NARRATIVE: CASE EVENT DATE: 20231228
